FAERS Safety Report 6013776-7 (Version None)
Quarter: 2008Q4

REPORT INFORMATION
  Report Type: 
  Country: None (occurrence: None)
  Receive Date: 20081216
  Receipt Date: 20071030
  Transmission Date: 20090506
  Serious: Yes (Life-Threatening)
  Sender: FDA-Public Use
  Company Number: US-WYE-H00973607

PATIENT
  Age: 56 Year
  Sex: Female
  Weight: 59.02 kg

DRUGS (5)
  1. EFFEXOR XR [Suspect]
     Indication: DEPRESSION
     Dosage: 150 MG 1X PER 1 DAY, ORAL ; 75 MG 1X PER 1 DAY, ORAL
     Route: 047
     Dates: start: 20070921, end: 20070927
  2. EFFEXOR XR [Suspect]
     Indication: DEPRESSION
     Dosage: 150 MG 1X PER 1 DAY, ORAL ; 75 MG 1X PER 1 DAY, ORAL
     Route: 047
     Dates: start: 20070928, end: 20071027
  3. XANAX [Concomitant]
  4. BENADRYL [Concomitant]
  5. PRILOSEC [Concomitant]

REACTIONS (3)
  - GRAND MAL CONVULSION [None]
  - LACERATION [None]
  - LOOSE TOOTH [None]
